FAERS Safety Report 6208766-5 (Version None)
Quarter: 2009Q2

REPORT INFORMATION
  Report Type: 
  Country: None (occurrence: None)
  Receive Date: 20090529
  Receipt Date: 20090522
  Transmission Date: 20091009
  Serious: No
  Sender: FDA-Public Use
  Company Number: B0575623A

PATIENT
  Age: 65 Year
  Sex: Female

DRUGS (11)
  1. ALLI [Suspect]
     Route: 048
     Dates: start: 20090501, end: 20090501
  2. ZARATOR [Concomitant]
     Route: 065
  3. COMPETACT [Concomitant]
  4. VENLAFAXINE HCL [Concomitant]
     Indication: DEPRESSION
     Route: 065
  5. ORFIDAL [Concomitant]
     Indication: DEPRESSION
     Route: 065
  6. MICARDIS HCT [Concomitant]
     Indication: HYPERTENSION
     Route: 065
  7. TARKA [Concomitant]
     Indication: HYPERTENSION
     Route: 065
  8. ACTONEL [Concomitant]
     Route: 065
  9. UNKNOWN DRUG [Concomitant]
  10. PANTECTA [Concomitant]
     Indication: PROPHYLAXIS
     Route: 065
  11. VENORUTON [Concomitant]
     Indication: ILL-DEFINED DISORDER
     Route: 065

REACTIONS (1)
  - ABDOMINAL PAIN [None]
